FAERS Safety Report 6824252-3 (Version None)
Quarter: 2010Q3

REPORT INFORMATION
  Report Type: 
  Country: None (occurrence: None)
  Receive Date: 20100708
  Receipt Date: 20061010
  Transmission Date: 20110219
  Serious: No
  Sender: FDA-Public Use
  Company Number: US-PFIZER INC-2006125984

PATIENT
  Sex: Female
  Weight: 103.87 kg

DRUGS (14)
  1. CHANTIX [Suspect]
     Indication: SMOKING CESSATION THERAPY
     Dates: start: 20061006
  2. ROBAXIN [Concomitant]
  3. PREVACID [Concomitant]
  4. CLONAZEPAM [Concomitant]
  5. NASONEX [Concomitant]
  6. PAXIL [Concomitant]
  7. AMBIEN [Concomitant]
     Dates: start: 20061006
  8. NORVASC [Concomitant]
  9. HYZAAR [Concomitant]
  10. SPIRIVA [Concomitant]
  11. VITAMIN B-12 [Concomitant]
  12. VITAMIN B COMPLEX WITH C [Concomitant]
  13. IRON [Concomitant]
  14. VITAMIN E [Concomitant]

REACTIONS (3)
  - HEADACHE [None]
  - INSOMNIA [None]
  - NAUSEA [None]
